FAERS Safety Report 6295022-2 (Version None)
Quarter: 2009Q3

REPORT INFORMATION
  Report Type: 
  Country: None (occurrence: None)
  Receive Date: 20090731
  Receipt Date: 20090731
  Transmission Date: 20100115
  Serious: Yes (Disabling)
  Sender: FDA-Public Use
  Company Number: None

PATIENT
  Age: 17 Year
  Sex: Female
  Weight: 57.6068 kg

DRUGS (1)
  1. CLARITHROMYCIN [Suspect]
     Indication: INFECTION
     Dosage: WILL NEED TO VERIFY 2 PILLS PO
     Route: 048
     Dates: start: 20090625, end: 20090704

REACTIONS (4)
  - JOINT DISLOCATION [None]
  - MENISCUS LESION [None]
  - MUSCULAR WEAKNESS [None]
  - TIBIA FRACTURE [None]
